FAERS Safety Report 7074155-7 (Version None)
Quarter: 2010Q4

REPORT INFORMATION
  Report Type: 
  Country: None (occurrence: None)
  Receive Date: 20101029
  Receipt Date: 20101025
  Transmission Date: 20110411
  Serious: Yes (Hospitalization)
  Sender: FDA-Public Use
  Company Number: ES-PFIZER INC-2010116491

PATIENT
  Age: 68 Year
  Sex: Male
  Weight: 74 kg

DRUGS (6)
  1. SUTENT [Suspect]
     Indication: RENAL CELL CARCINOMA
     Dosage: 37.5 MG, DAILY FOR 4 WEEKS EVERY 6 WEEKS
     Dates: start: 20080731, end: 20091012
  2. EUTIROX [Concomitant]
  3. OMEPRAZOLE [Concomitant]
  4. CHLORTHALIDONE [Concomitant]
  5. GLYBURIDE [Concomitant]
  6. ATACAND [Concomitant]

REACTIONS (4)
  - ACUTE MYOCARDIAL INFARCTION [None]
  - GASTROINTESTINAL HAEMORRHAGE [None]
  - LACUNAR INFARCTION [None]
  - NEPHROTIC SYNDROME [None]
